FAERS Safety Report 15488068 (Version 1)
Quarter: 2018Q4

REPORT INFORMATION
  Report Type: Spontaneous
  Country: US (occurrence: US)
  Receive Date: 20181003
  Receipt Date: 20181003
  Transmission Date: 20190205
  Serious: No
  Sender: FDA-Public Use
  Company Number: None

PATIENT
  Age: 46 Year
  Weight: 74.39 kg

DRUGS (2)
  1. OTREXUP [Suspect]
     Active Substance: METHOTREXATE
     Indication: PSORIATIC ARTHROPATHY
     Dosage: ON SAME DAY EACH WEEK AS DIRECTED
     Route: 058
     Dates: start: 201512
  2. TALTZ [Suspect]
     Active Substance: IXEKIZUMAB
     Route: 058
     Dates: start: 201802

REACTIONS (4)
  - Fall [None]
  - Balance disorder [None]
  - Abdominal pain upper [None]
  - Product dose omission [None]
